FAERS Safety Report 15524801 (Version 4)
Quarter: 2020Q4

REPORT INFORMATION
  Report Type: Report from Study
  Country: US (occurrence: US)
  Receive Date: 20181018
  Receipt Date: 20201201
  Transmission Date: 20210113
  Serious: Yes (Hospitalization, Other)
  Sender: FDA-Public Use
  Company Number: US-ROCHE-2198692

PATIENT
  Age: 83 Year
  Sex: Male
  Weight: 84 kg

DRUGS (6)
  1. LIPITOR [Concomitant]
     Active Substance: ATORVASTATIN CALCIUM
  2. PAXIL [Concomitant]
     Active Substance: PAROXETINE HYDROCHLORIDE
  3. AVALIDE [Concomitant]
     Active Substance: HYDROCHLOROTHIAZIDE\IRBESARTAN
     Dosage: 300-12.5 MG
  4. PROTONIX [Concomitant]
     Active Substance: PANTOPRAZOLE SODIUM
  5. GLUCOPHAGE [Concomitant]
     Active Substance: METFORMIN HYDROCHLORIDE
  6. ATEZOLIZUMAB. [Suspect]
     Active Substance: ATEZOLIZUMAB
     Indication: BLADDER CANCER
     Dosage: THIS WAS ALSO THE MOST RECENT DOSE OF ATEZOLIZUMAB PRIOR TO ONSET OF EVENT
     Route: 042
     Dates: start: 20180911

REACTIONS (7)
  - Myocardial infarction [Recovered/Resolved with Sequelae]
  - Lipase increased [Unknown]
  - Acute kidney injury [Recovered/Resolved with Sequelae]
  - Delirium [Recovered/Resolved with Sequelae]
  - Pneumonitis [Recovered/Resolved with Sequelae]
  - Influenza like illness [Recovered/Resolved with Sequelae]
  - Muscular weakness [Recovered/Resolved with Sequelae]

NARRATIVE: CASE EVENT DATE: 20180921
